FAERS Safety Report 7734387-9 (Version None)
Quarter: 2011Q3

REPORT INFORMATION
  Report Type: 
  Country: None (occurrence: None)
  Receive Date: 20110907
  Receipt Date: 20110829
  Transmission Date: 20111222
  Serious: Yes (Other)
  Sender: FDA-Public Use
  Company Number: CA-JNJFOC-20110801393

PATIENT
  Sex: Female

DRUGS (1)
  1. REMICADE [Suspect]
     Indication: CROHN'S DISEASE
     Route: 042
     Dates: start: 20100701

REACTIONS (4)
  - LOWER LIMB FRACTURE [None]
  - CROHN'S DISEASE [None]
  - FALL [None]
  - DEVICE RELATED INFECTION [None]
